FAERS Safety Report 9140342 (Version 1)
Quarter: 2013Q1

REPORT INFORMATION
  Report Type: Report from Study
  Country: CA (occurrence: CA)
  Receive Date: 20130305
  Receipt Date: 20130305
  Transmission Date: 20140127
  Serious: Yes (Other)
  Sender: FDA-Public Use
  Company Number: CA-JNJFOC-20130216517

PATIENT
  Age: 46 None
  Sex: Female
  Weight: 54 kg

DRUGS (2)
  1. REMICADE [Suspect]
     Indication: CROHN^S DISEASE
     Dosage: DURATION: 90 MINUTES
     Route: 042
     Dates: start: 20030309
  2. IMURAN [Concomitant]
     Route: 065

REACTIONS (2)
  - Nephrolithiasis [Recovered/Resolved]
  - Cystitis [Recovered/Resolved]
